FAERS Safety Report 12362401 (Version 1)
Quarter: 2016Q2

REPORT INFORMATION
  Report Type: Spontaneous
  Country: US (occurrence: US)
  Receive Date: 20160512
  Receipt Date: 20160512
  Transmission Date: 20160815
  Serious: No
  Sender: FDA-Public Use
  Company Number: US-SHIRE-US201605782

PATIENT
  Age: 75 Year
  Sex: Female
  Weight: 63.49 kg

DRUGS (3)
  1. LIALDA [Suspect]
     Active Substance: MESALAMINE
     Indication: INFLAMMATORY BOWEL DISEASE
     Dosage: 2.4 G (TWO 1.2 G TABLETS), 1X/DAY:QD (WITH EVENNING MEAL)
     Route: 048
     Dates: start: 20160429, end: 20160501
  2. PRAVASTATIN [Concomitant]
     Active Substance: PRAVASTATIN\PRAVASTATIN SODIUM
     Indication: BLOOD CHOLESTEROL ABNORMAL
     Dosage: 10 MG, 1X/DAY:QD
     Route: 048
     Dates: start: 2015
  3. LIALDA [Suspect]
     Active Substance: MESALAMINE
     Indication: HAEMORRHAGE
     Dosage: 1.2 G, 1X/DAY:QD (WITH EVENING MEAL)
     Route: 048
     Dates: start: 20160502, end: 20160505

REACTIONS (11)
  - Sinus congestion [Unknown]
  - Abdominal pain upper [Recovered/Resolved]
  - Blister [Recovering/Resolving]
  - Pruritus [Unknown]
  - Frequent bowel movements [Recovered/Resolved]
  - Defaecation urgency [Recovered/Resolved]
  - Peripheral swelling [Recovered/Resolved]
  - Skin exfoliation [Unknown]
  - Product use issue [Recovered/Resolved]
  - Erythema [Not Recovered/Not Resolved]
  - Skin burning sensation [Unknown]

NARRATIVE: CASE EVENT DATE: 20160429
